FAERS Safety Report 19749161 (Version 1)
Quarter: 2021Q3

REPORT INFORMATION
  Report Type: Spontaneous
  Country: US (occurrence: US)
  Receive Date: 20210826
  Receipt Date: 20210826
  Transmission Date: 20211014
  Serious: No
  Sender: FDA-Public Use
  Company Number: US-ASTRAZENECA-2021A674672

PATIENT
  Sex: Female
  Weight: 84.4 kg

DRUGS (4)
  1. GINGER ROOT [Concomitant]
     Active Substance: GINGER
  2. METOPROLOL TARTRATE. [Concomitant]
     Active Substance: METOPROLOL TARTRATE
  3. LYNPARZA [Suspect]
     Active Substance: OLAPARIB
     Indication: OVARIAN CANCER
     Route: 048
     Dates: start: 202104
  4. ONDANSETRON [Concomitant]
     Active Substance: ONDANSETRON

REACTIONS (5)
  - Pulmonary congestion [Unknown]
  - Asthenia [Unknown]
  - Motion sickness [Unknown]
  - Dizziness [Not Recovered/Not Resolved]
  - Decreased activity [Unknown]
